FAERS Safety Report 5896916-X (Version None)
Quarter: 2008Q3

REPORT INFORMATION
  Report Type: 
  Country: None (occurrence: None)
  Receive Date: 20080924
  Receipt Date: 20080919
  Transmission Date: 20090109
  Serious: Yes (Other)
  Sender: FDA-Public Use
  Company Number: GB-ABBOTT-08P-167-0475690-00

PATIENT
  Sex: Female
  Weight: 60.2 kg

DRUGS (5)
  1. HUMIRA [Suspect]
     Indication: CROHN'S DISEASE
     Route: 058
     Dates: start: 20080401, end: 20080901
  2. AZIOTHIOPRINE [Concomitant]
     Indication: CROHN'S DISEASE
     Route: 048
  3. MESALAMINE [Concomitant]
     Indication: CROHN'S DISEASE
  4. LEVOTHYROXINE SODIUM [Concomitant]
     Indication: HYPERTHYROIDISM
     Route: 048
  5. CODEINE PHOSPHATE [Concomitant]
     Indication: ANALGESIA
     Dosage: 30 MILLIGRAM 4 HOURLY
     Route: 048

REACTIONS (4)
  - NASAL DISCOMFORT [None]
  - NEOPLASM SKIN [None]
  - RASH GENERALISED [None]
  - SKIN FISSURES [None]
